FAERS Safety Report 13749246 (Version 5)
Quarter: 2017Q4

REPORT INFORMATION
  Report Type: Spontaneous
  Country: IN (occurrence: IN)
  Receive Date: 20170713
  Receipt Date: 20171018
  Transmission Date: 20180320
  Serious: Yes (Other)
  Sender: FDA-Public Use
  Company Number: IN-AMGEN-INDSP2017067485

PATIENT
  Age: 66 Year
  Sex: Male

DRUGS (1)
  1. VECTIBIX [Suspect]
     Active Substance: PANITUMUMAB
     Indication: COLORECTAL CANCER METASTATIC
     Dosage: 100 MG, UNK
     Route: 042
     Dates: start: 20170310

REACTIONS (15)
  - Skin injury [Recovered/Resolved]
  - Tongue injury [Not Recovered/Not Resolved]
  - Lung infection [Recovered/Resolved]
  - Blister [Unknown]
  - Weight decreased [Unknown]
  - Viral infection [Recovered/Resolved]
  - Feeding disorder [Not Recovered/Not Resolved]
  - Pyrexia [Unknown]
  - Oropharyngeal pain [Recovering/Resolving]
  - Sneezing [Unknown]
  - Dehydration [Recovered/Resolved]
  - Seizure [Recovered/Resolved]
  - Tongue eruption [Recovered/Resolved]
  - Laceration [Recovered/Resolved]
  - Skin disorder [Unknown]

NARRATIVE: CASE EVENT DATE: 20170421
